FAERS Safety Report 11964952 (Version 1)
Quarter: 2016Q1

REPORT INFORMATION
  Report Type: Other
  Country: GB (occurrence: GB)
  Receive Date: 20160127
  Receipt Date: 20160127
  Transmission Date: 20160526
  Serious: Yes (Hospitalization, Other)
  Sender: FDA-Public Use
  Company Number: GB-ACTELION-A-CH2016-130338

PATIENT
  Age: 61 Year
  Sex: Male

DRUGS (2)
  1. TRACLEER [Suspect]
     Active Substance: BOSENTAN
     Indication: PULMONARY ARTERIAL HYPERTENSION
     Route: 048
  2. HEPARIN [Suspect]
     Active Substance: HEPARIN SODIUM
     Indication: CORONARY ARTERY STENOSIS
     Route: 065

REACTIONS (10)
  - Muscle haemorrhage [Unknown]
  - Angina pectoris [Unknown]
  - Pulmonary congestion [Unknown]
  - Right ventricular dysfunction [Unknown]
  - Coronary artery disease [Unknown]
  - Coronary artery stenosis [Unknown]
  - Coronary arterial stent insertion [Unknown]
  - Acute coronary syndrome [Unknown]
  - Chest pain [Unknown]
  - Dyspnoea [Unknown]

NARRATIVE: CASE EVENT DATE: 2006
